FAERS Safety Report 7282141-7 (Version None)
Quarter: 2011Q1

REPORT INFORMATION
  Report Type: 
  Country: None (occurrence: None)
  Receive Date: 20110208
  Receipt Date: 20110201
  Transmission Date: 20110831
  Serious: Yes (Hospitalization)
  Sender: FDA-Public Use
  Company Number: FR-PFIZER INC-2009299891

PATIENT
  Age: 67 Year
  Sex: Female
  Weight: 48 kg

DRUGS (6)
  1. TAHOR [Suspect]
     Dosage: 20 MG, 1X/DAY
     Route: 048
     Dates: start: 20090401
  2. NEXIUM [Suspect]
     Dosage: 20 MG, 1X/DAY
     Route: 048
     Dates: start: 20090401, end: 20090724
  3. TARDYFERON [Concomitant]
     Dosage: UNK
     Dates: start: 20090401
  4. ASPIRIN [Concomitant]
     Dosage: 75 MG, 1X/DAY
     Dates: start: 20090401, end: 20090501
  5. CORDARONE [Suspect]
     Dosage: 100 MG, 1X/DAY
     Route: 048
     Dates: start: 20090401, end: 20090811
  6. RIVOTRIL [Concomitant]
     Dosage: 5 GTT, 1X/DAY
     Dates: start: 20090401

REACTIONS (1)
  - THROMBOCYTOPENIA [None]
